FAERS Safety Report 7022525-5 (Version None)
Quarter: 2010Q3

REPORT INFORMATION
  Report Type: 
  Country: None (occurrence: None)
  Receive Date: 20100930
  Receipt Date: 20100921
  Transmission Date: 20110219
  Serious: Yes (Other)
  Sender: FDA-Public Use
  Company Number: DE-PFIZER INC-2010119305

PATIENT
  Age: 30 Year
  Sex: Female

DRUGS (1)
  1. XALATAN [Suspect]
     Dosage: 1 DF, 1X/DAY
     Dates: start: 20050101

REACTIONS (1)
  - EYELID PTOSIS [None]
